FAERS Safety Report 15159797 (Version 1)
Quarter: 2018Q3

REPORT INFORMATION
  Report Type: Spontaneous
  Country: CA (occurrence: CA)
  Receive Date: 20180718
  Receipt Date: 20180718
  Transmission Date: 20181010
  Serious: Yes (Hospitalization, Other)
  Sender: FDA-Public Use
  Company Number: CA-GLAXOSMITHKLINE-CA2018GSK126633

PATIENT
  Age: 64 Year
  Sex: Male

DRUGS (3)
  1. NUCALA [Suspect]
     Active Substance: MEPOLIZUMAB
     Indication: ASTHMA
     Dosage: 100 MG, UNK
     Route: 042
  2. APO?SALVENT [Suspect]
     Active Substance: ALBUTEROL
     Indication: PRODUCT USED FOR UNKNOWN INDICATION
     Dosage: UNK
  3. DESOXIMETASONE. [Concomitant]
     Active Substance: DESOXIMETASONE
     Indication: PRODUCT USED FOR UNKNOWN INDICATION
     Dosage: 50 MG, UNK

REACTIONS (16)
  - Respiratory tract infection fungal [Recovering/Resolving]
  - Cough [Recovering/Resolving]
  - Dyspnoea [Recovering/Resolving]
  - Drug ineffective [Recovering/Resolving]
  - Gait disturbance [Recovering/Resolving]
  - Infection [Recovering/Resolving]
  - Sinus disorder [Recovering/Resolving]
  - Fungal pharyngitis [Recovering/Resolving]
  - Pulmonary mycosis [Recovering/Resolving]
  - Oral fungal infection [Recovering/Resolving]
  - Sputum discoloured [Recovering/Resolving]
  - Diabetes mellitus [Recovering/Resolving]
  - Dyspnoea exertional [Recovering/Resolving]
  - Bronchospasm [Recovering/Resolving]
  - Pneumonia [Recovering/Resolving]
  - Productive cough [Recovering/Resolving]
